FAERS Safety Report 11321086 (Version 3)
Quarter: 2015Q3

REPORT INFORMATION
  Report Type: Report from Study
  Country: CA (occurrence: CA)
  Receive Date: 20150729
  Receipt Date: 20150814
  Transmission Date: 20151125
  Serious: Yes (Hospitalization)
  Sender: FDA-Public Use
  Company Number: CA-ABBVIE-15K-028-1433579-00

PATIENT
  Age: 65 Year
  Sex: Male
  Weight: 74.46 kg

DRUGS (4)
  1. VSL#3 [Concomitant]
     Active Substance: PROBIOTICS NOS
     Indication: PRODUCT USED FOR UNKNOWN INDICATION
     Dates: start: 2011
  2. HUMIRA [Suspect]
     Active Substance: ADALIMUMAB
     Indication: CROHN^S DISEASE
     Route: 058
     Dates: start: 20101125
  3. AVODART [Concomitant]
     Active Substance: DUTASTERIDE
     Indication: DYSURIA
  4. CRESTOR [Concomitant]
     Active Substance: ROSUVASTATIN CALCIUM
     Indication: BLOOD CHOLESTEROL INCREASED
     Dosage: DURATION: 8 OR 9 YEARS

REACTIONS (17)
  - Flatulence [Unknown]
  - Small intestinal obstruction [Recovered/Resolved]
  - Nausea [Recovered/Resolved]
  - Anxiety [Unknown]
  - Atelectasis [Unknown]
  - Crohn^s disease [Unknown]
  - Hyperhidrosis [Not Recovered/Not Resolved]
  - Food intolerance [Unknown]
  - Abdominal distension [Unknown]
  - Constipation [Recovered/Resolved]
  - Gastrointestinal inflammation [Unknown]
  - Intestinal dilatation [Unknown]
  - Intestinal stenosis [Unknown]
  - Sinus bradycardia [Not Recovered/Not Resolved]
  - Aortic arteriosclerosis [Unknown]
  - Accessory spleen [Unknown]
  - Gastrointestinal wall thickening [Unknown]

NARRATIVE: CASE EVENT DATE: 20111120
